FAERS Safety Report 13574178 (Version 1)
Quarter: 2017Q2

REPORT INFORMATION
  Report Type: Spontaneous
  Country: CN (occurrence: CN)
  Receive Date: 20170523
  Receipt Date: 20170523
  Transmission Date: 20170830
  Serious: Yes (Life-Threatening)
  Sender: FDA-Public Use
  Company Number: CN-BAYER-2017-090469

PATIENT
  Age: 77 Year
  Sex: Female

DRUGS (2)
  1. GLUCOSE INJECTION [Concomitant]
     Indication: NUTRITIONAL SUPPLEMENTATION
     Dosage: 250 ML, QD
     Route: 041
     Dates: start: 20170326, end: 20170326
  2. AVELOX [Suspect]
     Active Substance: MOXIFLOXACIN HYDROCHLORIDE
     Indication: RESPIRATORY TRACT INFECTION
     Dosage: 0.4 G, QD
     Route: 041
     Dates: start: 20170326, end: 20170326

REACTIONS (3)
  - Palpitations [Recovering/Resolving]
  - Asthma [Recovering/Resolving]
  - Chest discomfort [Recovering/Resolving]

NARRATIVE: CASE EVENT DATE: 20170326
